FAERS Safety Report 15935776 (Version 2)
Quarter: 2019Q1

REPORT INFORMATION
  Report Type: Other
  Country: DK (occurrence: DK)
  Receive Date: 20190208
  Receipt Date: 20190212
  Transmission Date: 20190417
  Serious: Yes (Other)
  Sender: FDA-Public Use
  Company Number: DK-STRIDES ARCOLAB LIMITED-2019SP000980

PATIENT
  Age: 37 Year
  Sex: Male

DRUGS (2)
  1. PREDNISOLONE. [Concomitant]
     Active Substance: PREDNISOLONE
     Indication: SINUSITIS
     Dosage: 50 MG, PER DAY
     Route: 048
     Dates: start: 20170705
  2. VANCOMYCIN [Suspect]
     Active Substance: VANCOMYCIN
     Indication: SINUSITIS
     Dosage: UNK
     Route: 065
     Dates: start: 20170807

REACTIONS (3)
  - Anaphylactic shock [Recovered/Resolved]
  - Rash erythematous [Recovered/Resolved]
  - Pruritus [Recovered/Resolved]

NARRATIVE: CASE EVENT DATE: 20170807
